FAERS Safety Report 6016139-3 (Version None)
Quarter: 2008Q4

REPORT INFORMATION
  Report Type: 
  Country: None (occurrence: None)
  Receive Date: 20081218
  Receipt Date: 20081208
  Transmission Date: 20090506
  Serious: Yes (Hospitalization, Other)
  Sender: FDA-Public Use
  Company Number: 2008AP003369

PATIENT
  Age: 22 Month
  Sex: Female

DRUGS (9)
  1. CARVEDILOL [Suspect]
     Dosage: 4.5 MG, BID
  2. CAPTOPRIL [Suspect]
     Dosage: 10 MG, TID
  3. SEVOFLURANE [Suspect]
     Dosage: 3 PCT
  4. REMIFENTANIL (REMIFENTANIL) [Suspect]
     Dosage: 1 UG
  5. MIDAZOLAM HCL [Concomitant]
  6. ACETAMINOPHEN [Concomitant]
  7. DIGOXIN [Concomitant]
  8. FUROSEMIDE [Concomitant]
  9. AMIODARONE HCL [Concomitant]

REACTIONS (3)
  - CARDIAC ARREST [None]
  - CIRCULATORY COLLAPSE [None]
  - ELECTROMECHANICAL DISSOCIATION [None]
